FAERS Safety Report 9631171 (Version 4)
Quarter: 2013Q4

REPORT INFORMATION
  Report Type: Spontaneous
  Country: JP (occurrence: JP)
  Receive Date: 20131018
  Receipt Date: 20131223
  Transmission Date: 20140711
  Serious: Yes (Death, Life-Threatening, Hospitalization, Other)
  Sender: FDA-Public Use
  Company Number: JP-MPIJNJ-2013JNJ000100

PATIENT
  Sex: 0

DRUGS (20)
  1. VELCADE [Suspect]
     Indication: PLASMA CELL MYELOMA
     Dosage: 1.7 MG, UNK
     Route: 058
     Dates: start: 20130724, end: 20130731
  2. LENADEX [Suspect]
     Indication: PLASMA CELL MYELOMA
     Dosage: 20 MG, UNK
     Route: 048
     Dates: start: 20130724, end: 20130728
  3. MEROPENEM [Suspect]
     Indication: PNEUMONIA
     Dosage: 3 G, UNK
     Route: 042
     Dates: start: 20130805, end: 20130809
  4. TRAMACET                           /01625001/ [Concomitant]
     Indication: COMPRESSION FRACTURE
     Dosage: 150 MG, UNK
     Route: 048
     Dates: start: 201304, end: 20130725
  5. RISPERDAL [Concomitant]
     Indication: DELIRIUM
     Dosage: 1 MG, UNK
     Route: 048
     Dates: start: 20130729, end: 20130731
  6. DECADRON                           /00016001/ [Concomitant]
     Indication: PLASMA CELL MYELOMA
     Dosage: 20 MG, UNK
     Route: 048
     Dates: start: 20130724, end: 20130728
  7. NEXIUM                             /01479302/ [Concomitant]
     Indication: PROPHYLAXIS AGAINST GASTROINTESTINAL ULCER
     Dosage: 10 MG, QD
     Route: 048
     Dates: start: 20130715, end: 20130731
  8. FLUCONAZOLE [Concomitant]
     Indication: ANTIFUNGAL PROPHYLAXIS
     Dosage: 50 MG, QD
     Route: 048
     Dates: start: 20130725, end: 20130731
  9. FENTANYL CITRATE [Concomitant]
     Indication: COMPRESSION FRACTURE
     Dosage: 1 MG, UNK
     Route: 062
     Dates: start: 20130725, end: 20130728
  10. FENTANYL CITRATE [Concomitant]
     Dosage: 2 MG, UNK
     Route: 062
     Dates: start: 20130729, end: 20130808
  11. SEROQUEL [Concomitant]
     Indication: DELIRIUM
     Dosage: 50 MG, QD
     Route: 048
     Dates: start: 20130729, end: 20130731
  12. PRODIF [Concomitant]
     Indication: ANTIFUNGAL PROPHYLAXIS
     Dosage: 100 MG, QD
     Route: 042
     Dates: start: 20130801, end: 20130806
  13. OMEPRAL                            /00661201/ [Concomitant]
     Indication: PROPHYLAXIS AGAINST GASTROINTESTINAL ULCER
     Dosage: 20 MG, UNK
     Route: 042
     Dates: start: 20130801, end: 20130809
  14. MAXIPIME [Concomitant]
     Indication: PNEUMONIA
     Dosage: 4 G, UNK
     Route: 042
     Dates: start: 20130802, end: 20130804
  15. VANCOMYCIN [Concomitant]
     Indication: PNEUMONIA
     Dosage: UNK G, UNK
     Route: 048
     Dates: start: 20130806, end: 20130815
  16. VANCOMYCIN [Concomitant]
     Indication: PSEUDOMEMBRANOUS COLITIS
  17. FUNGUARD [Concomitant]
     Indication: PNEUMONIA
     Dosage: 150 MG, UNK
     Route: 042
     Dates: start: 20130807, end: 20130816
  18. SOL-MELCORT [Concomitant]
     Indication: INTERSTITIAL LUNG DISEASE
     Dosage: 1 G, QD
     Route: 042
     Dates: start: 20130808, end: 20130810
  19. LASIX                              /00032601/ [Concomitant]
     Indication: CARDIAC FAILURE CONGESTIVE
     Dosage: 20 MG, UNK
     Route: 048
     Dates: start: 20130810, end: 20130815
  20. RED BLOOD CELLS, CONCENTRATED [Concomitant]
     Indication: TRANSFUSION
     Dosage: 10 IU, UNK
     Route: 042
     Dates: start: 20130806, end: 20130821

REACTIONS (8)
  - Interstitial lung disease [Fatal]
  - Cardiac failure congestive [Not Recovered/Not Resolved]
  - Melaena [Unknown]
  - Rectal ulcer [Not Recovered/Not Resolved]
  - Delirium [Recovering/Resolving]
  - Pseudomembranous colitis [Recovered/Resolved]
  - Platelet count decreased [Recovering/Resolving]
  - Cytomegalovirus infection [Unknown]
